FAERS Safety Report 10384484 (Version 2)
Quarter: 2014Q3

REPORT INFORMATION
  Report Type: Spontaneous
  Country: DK (occurrence: FR)
  Receive Date: 20140814
  Receipt Date: 20140919
  Transmission Date: 20150326
  Serious: Yes (Hospitalization)
  Sender: FDA-Public Use
  Company Number: FR-FRI-1000069787

PATIENT
  Age: 80 Year
  Sex: Male

DRUGS (8)
  1. ESCITALOPRAM [Suspect]
     Active Substance: ESCITALOPRAM OXALATE
     Route: 048
  2. DIAMICRON [Suspect]
     Active Substance: GLICLAZIDE
     Route: 048
  3. DIAMICRON [Suspect]
     Active Substance: GLICLAZIDE
     Dosage: 2 DF
     Route: 048
     Dates: start: 20140729, end: 20140729
  4. ESCITALOPRAM [Suspect]
     Active Substance: ESCITALOPRAM OXALATE
     Dosage: 2 DF
     Route: 048
     Dates: start: 20140729, end: 20140729
  5. MONO TILDIEM LP [Suspect]
     Active Substance: DILTIAZEM HYDROCHLORIDE
     Dosage: 2 DF
     Route: 048
     Dates: start: 20140729, end: 20140729
  6. COVERSYL [Suspect]
     Active Substance: PERINDOPRIL
     Dosage: 2 DF
     Route: 048
     Dates: start: 20140729, end: 20140729
  7. COVERSYL [Suspect]
     Active Substance: PERINDOPRIL
     Route: 048
  8. MONO TILDIEM LP [Suspect]
     Active Substance: DILTIAZEM HYDROCHLORIDE
     Route: 048

REACTIONS (4)
  - Medication error [Recovered/Resolved]
  - Bradycardia [Recovered/Resolved]
  - Incorrect dose administered [Recovered/Resolved]
  - Confusional state [Recovered/Resolved]

NARRATIVE: CASE EVENT DATE: 20140729
